FAERS Safety Report 10034447 (Version 1)
Quarter: 2014Q1

REPORT INFORMATION
  Report Type: Spontaneous
  Country: US (occurrence: None)
  Receive Date: 20140324
  Receipt Date: 20140324
  Transmission Date: 20141002
  Serious: Yes (Hospitalization)
  Sender: FDA-Public Use
  Company Number: None

PATIENT
  Age: 61 Year
  Sex: Female
  Weight: 76.2 kg

DRUGS (1)
  1. DOXYCYCLINE [Suspect]
     Indication: DACRYOCYSTITIS
     Dosage: 1 PILL, TWICE DAILY, TAKEN BY MOUTH
     Route: 048
     Dates: start: 20140319, end: 20140321

REACTIONS (2)
  - Vomiting [None]
  - Transient global amnesia [None]
